FAERS Safety Report 9437147 (Version 1)
Quarter: 2013Q3

REPORT INFORMATION
  Report Type: Report from Study
  Country: CA (occurrence: CA)
  Receive Date: 20130802
  Receipt Date: 20130802
  Transmission Date: 20140515
  Serious: Yes (Other)
  Sender: FDA-Public Use
  Company Number: CA-JNJFOC-20130717042

PATIENT
  Age: 56 Year
  Sex: Female
  Weight: 68 kg

DRUGS (6)
  1. REMICADE [Suspect]
     Indication: RHEUMATOID ARTHRITIS
     Route: 042
     Dates: start: 20091118
  2. LEVOTHYROXINE [Concomitant]
     Route: 065
  3. METHOTREXATE [Concomitant]
     Route: 065
  4. PLAQUENIL [Concomitant]
     Route: 065
  5. FOLIC ACID [Concomitant]
     Route: 065
  6. TIAPROFENIC ACID [Concomitant]
     Route: 065

REACTIONS (1)
  - Foot operation [Recovering/Resolving]
